FAERS Safety Report 8349034-5 (Version None)
Quarter: 2012Q2

REPORT INFORMATION
  Report Type: 
  Country: None (occurrence: None)
  Receive Date: 20120508
  Receipt Date: 20120426
  Transmission Date: 20120825
  Serious: Yes (Hospitalization, Other)
  Sender: FDA-Public Use
  Company Number: KAD201204-000258

PATIENT
  Age: 52 Year
  Sex: Female

DRUGS (3)
  1. PEGINTERFERON ALFA-2B [Suspect]
     Indication: HEPATITIS C
     Dosage: 150 UG ONCE A WEEK
  2. METHIMAZOLE [Suspect]
     Indication: HYPERTHYROIDISM
     Dosage: 20 MG/DAY
  3. RIBAVIRIN [Suspect]
     Indication: HEPATITIS C
     Dosage: 1.2 G/DAY, 1 G/DAY (DOSE REDUCED)

REACTIONS (12)
  - TRISMUS [None]
  - MUCOSAL ULCERATION [None]
  - ENTEROCOCCUS TEST POSITIVE [None]
  - ANAEMIA [None]
  - EXERCISE TOLERANCE DECREASED [None]
  - DRUG INEFFECTIVE [None]
  - IRRITABILITY [None]
  - INSOMNIA [None]
  - AGRANULOCYTOSIS [None]
  - DYSPHAGIA [None]
  - HYPERTHYROIDISM [None]
  - TONSILLITIS [None]
